FAERS Safety Report 14775558 (Version 3)
Quarter: 2021Q2

REPORT INFORMATION
  Report Type: Spontaneous
  Country: US (occurrence: US)
  Receive Date: 20180418
  Receipt Date: 20210609
  Transmission Date: 20210716
  Serious: Yes (Death, Hospitalization, Other)
  Sender: FDA-Public Use
  Company Number: PHEH2018US014667

PATIENT
  Sex: Female
  Weight: 17 kg

DRUGS (9)
  1. PREDNISONE. [Concomitant]
     Active Substance: PREDNISONE
     Indication: PRODUCT USED FOR UNKNOWN INDICATION
     Dosage: 7 MG, QD
     Route: 048
  2. CICLOSPORIN [Suspect]
     Active Substance: CYCLOSPORINE
     Indication: PRODUCT USED FOR UNKNOWN INDICATION
     Dosage: UNK
     Route: 065
  3. PREDNISONE. [Concomitant]
     Active Substance: PREDNISONE
     Dosage: 6.75 MG, QD
     Route: 048
  4. METHOTREXATE. [Suspect]
     Active Substance: METHOTREXATE
     Indication: PRODUCT USED FOR UNKNOWN INDICATION
     Dosage: UNK
     Route: 065
  5. ANAKINRA [Suspect]
     Active Substance: ANAKINRA
     Indication: SERUM FERRITIN INCREASED
     Dosage: UNK
     Route: 065
     Dates: start: 2009
  6. ANAKINRA [Suspect]
     Active Substance: ANAKINRA
     Indication: THROMBOCYTOPENIA
  7. ILARIS [Suspect]
     Active Substance: CANAKINUMAB
     Indication: STILL^S DISEASE
     Dosage: 135 MG, Q4W
     Route: 065
  8. ANAKINRA [Suspect]
     Active Substance: ANAKINRA
     Indication: ANAEMIA
  9. PREDNISOLONE. [Concomitant]
     Active Substance: PREDNISOLONE
     Indication: PRODUCT USED FOR UNKNOWN INDICATION
     Dosage: 5 MG, QD
     Route: 048

REACTIONS (17)
  - Lung disorder [Fatal]
  - Adenovirus infection [Unknown]
  - Cyst [Recovered/Resolved]
  - Respiratory failure [Unknown]
  - Alveolar proteinosis [Unknown]
  - Rash macular [Unknown]
  - Clubbing [Unknown]
  - Viral infection [Unknown]
  - Pneumonia [Unknown]
  - Ill-defined disorder [Unknown]
  - Drug ineffective [Unknown]
  - Pseudomonas infection [Unknown]
  - Respiratory syncytial virus infection [Unknown]
  - Pneumonia viral [Unknown]
  - Pneumonia lipoid [Unknown]
  - Megacolon [Unknown]
  - Metapneumovirus infection [Unknown]
